FAERS Safety Report 23889024 (Version 1)
Quarter: 2024Q2

REPORT INFORMATION
  Report Type: Report from Study
  Country: US (occurrence: US)
  Receive Date: 20240523
  Receipt Date: 20240523
  Transmission Date: 20240716
  Serious: No
  Sender: FDA-Public Use
  Company Number: US-APELLIS-2024-APL-0000028

PATIENT

DRUGS (10)
  1. PEGCETACOPLAN [Suspect]
     Active Substance: PEGCETACOPLAN
     Indication: Paroxysmal nocturnal haemoglobinuria
     Dosage: 1080 MG/20 ML TWICE WEEKLY
     Route: 058
     Dates: start: 20240202
  2. EMPAVELI [Suspect]
     Active Substance: PEGCETACOPLAN
  3. ULTOMIRIS [Concomitant]
     Active Substance: RAVULIZUMAB-CWVZ
  4. LEVOTHYROXINE SODIUM [Concomitant]
     Active Substance: LEVOTHYROXINE SODIUM
  5. LIOTHYRONINE SODIUM [Concomitant]
     Active Substance: LIOTHYRONINE SODIUM
  6. VITAMINS [Concomitant]
     Active Substance: VITAMINS
  7. FOLIC ACID [Concomitant]
     Active Substance: FOLIC ACID
  8. MAGNESIUM OXIDE [Concomitant]
     Active Substance: MAGNESIUM OXIDE
  9. OMEGA-3-ACID ETHYL ESTERS [Concomitant]
     Active Substance: OMEGA-3-ACID ETHYL ESTERS
  10. BOTOX [Concomitant]
     Active Substance: ONABOTULINUMTOXINA

REACTIONS (3)
  - Product dose omission in error [Recovered/Resolved]
  - Device infusion issue [Recovered/Resolved]
  - Needle issue [Recovered/Resolved]

NARRATIVE: CASE EVENT DATE: 20240418
